FAERS Safety Report 21741493 (Version 1)
Quarter: 2022Q4

REPORT INFORMATION
  Report Type: Spontaneous
  Country: US (occurrence: US)
  Receive Date: 20221216
  Receipt Date: 20221216
  Transmission Date: 20230113
  Serious: No
  Sender: FDA-Public Use
  Company Number: US-GILEAD-2022-0609558

PATIENT
  Age: 19 Year
  Sex: Male

DRUGS (1)
  1. DESCOVY [Suspect]
     Active Substance: EMTRICITABINE\TENOFOVIR ALAFENAMIDE FUMARATE
     Indication: Prophylaxis against HIV infection
     Dosage: UNK
     Route: 065
     Dates: start: 20221115

REACTIONS (4)
  - Diarrhoea [Unknown]
  - Muscle spasms [Unknown]
  - Nausea [Unknown]
  - Product use issue [Unknown]
